FAERS Safety Report 13155448 (Version 2)
Quarter: 2017Q1

REPORT INFORMATION
  Report Type: Spontaneous
  Country: US (occurrence: US)
  Receive Date: 20170126
  Receipt Date: 20170217
  Transmission Date: 20170428
  Serious: No
  Sender: FDA-Public Use
  Company Number: US-009507513-1701USA005367

PATIENT
  Sex: Female

DRUGS (1)
  1. ZEPATIER [Suspect]
     Active Substance: ELBASVIR\GRAZOPREVIR
     Indication: HEPATITIS C
     Dosage: 50-100 MG, TAKE 1 TABLET BY MOUTH DAILY FOR 12 WEEKS
     Route: 048

REACTIONS (5)
  - Headache [Unknown]
  - Fatigue [Unknown]
  - Vision blurred [Unknown]
  - Memory impairment [Unknown]
  - Insomnia [Unknown]
